FAERS Safety Report 15094994 (Version 1)
Quarter: 2018Q3

REPORT INFORMATION
  Report Type: Report from Study
  Country: None (occurrence: US)
  Receive Date: 20180701
  Receipt Date: 20180701
  Transmission Date: 20181010
  Serious: Yes (Hospitalization, Other)
  Sender: FDA-Public Use
  Company Number: US-ABBVIE-18K-163-2400052-00

PATIENT
  Sex: Female
  Weight: 71.28 kg

DRUGS (9)
  1. FENOFIBRATE. [Concomitant]
     Active Substance: FENOFIBRATE
     Indication: BLOOD TRIGLYCERIDES INCREASED
  2. FENTANYL. [Concomitant]
     Active Substance: FENTANYL
     Indication: PAIN
  3. ZYRTEC [Concomitant]
     Active Substance: CETIRIZINE HYDROCHLORIDE
     Indication: HYPERSENSITIVITY
  4. PRAVASTATIN SODIUM. [Concomitant]
     Active Substance: PRAVASTATIN SODIUM
     Indication: BLOOD CHOLESTEROL INCREASED
  5. LYRICA [Concomitant]
     Active Substance: PREGABALIN
     Indication: NEURALGIA
  6. HYDROCODONE [Concomitant]
     Active Substance: HYDROCODONE
     Indication: PAIN
  7. HYDROCHLOROTHIAZIDE. [Concomitant]
     Active Substance: HYDROCHLOROTHIAZIDE
     Indication: HYPERTENSION
  8. HUMIRA [Suspect]
     Active Substance: ADALIMUMAB
     Indication: PSORIASIS
     Route: 058
     Dates: start: 2011, end: 2013
  9. ALPRAZOLAM. [Concomitant]
     Active Substance: ALPRAZOLAM
     Indication: ANXIETY

REACTIONS (17)
  - Skin abrasion [Unknown]
  - Fall [Unknown]
  - Malignant melanoma [Recovered/Resolved]
  - Thyroid disorder [Unknown]
  - Diabetes mellitus [Unknown]
  - Hypoaesthesia [Not Recovered/Not Resolved]
  - Fall [Recovered/Resolved]
  - Sciatic nerve injury [Not Recovered/Not Resolved]
  - Blood cholesterol abnormal [Unknown]
  - Blood glucose decreased [Unknown]
  - Lumbar vertebral fracture [Recovered/Resolved]
  - Adhesion [Not Recovered/Not Resolved]
  - Nerve root compression [Recovered/Resolved]
  - Blood triglycerides increased [Unknown]
  - Hypertension [Unknown]
  - Intervertebral disc protrusion [Recovered/Resolved]
  - Pyrexia [Recovered/Resolved]

NARRATIVE: CASE EVENT DATE: 2012
